FAERS Safety Report 7510010-3 (Version None)
Quarter: 2011Q2

REPORT INFORMATION
  Report Type: 
  Country: None (occurrence: None)
  Receive Date: 20110527
  Receipt Date: 20110523
  Transmission Date: 20111010
  Serious: Yes (Death)
  Sender: FDA-Public Use
  Company Number: FR-GENZYME-FLUD-1001195

PATIENT

DRUGS (7)
  1. THYMOGLOBULIN [Suspect]
     Indication: HAEMATOLOGICAL MALIGNANCY
  2. FLUDARA [Suspect]
     Indication: STEM CELL TRANSPLANT
     Dosage: 150 MG/M2, UNK
     Route: 065
  3. FLUDARA [Suspect]
     Indication: HAEMATOLOGICAL MALIGNANCY
  4. BUSULFAN [Suspect]
     Indication: STEM CELL TRANSPLANT
     Dosage: 6.4 MG/KG, UNK
     Route: 042
  5. CYCLOSPORINE [Concomitant]
     Indication: PROPHYLAXIS AGAINST GRAFT VERSUS HOST DISEASE
     Dosage: UNK STARTING DAY -3
     Route: 065
  6. BUSULFAN [Suspect]
     Indication: HAEMATOLOGICAL MALIGNANCY
  7. THYMOGLOBULIN [Suspect]
     Indication: STEM CELL TRANSPLANT
     Dosage: 5 MG/KG, INTERMEDIATE DOSE ON DAY -2 AND -1
     Route: 065

REACTIONS (1)
  - TRANSPLANT FAILURE [None]
